FAERS Safety Report 16774802 (Version 1)
Quarter: 2019Q3

REPORT INFORMATION
  Report Type: Spontaneous
  Country: CN (occurrence: CN)
  Receive Date: 20190905
  Receipt Date: 20190905
  Transmission Date: 20191005
  Serious: Yes (Hospitalization, Other)
  Sender: FDA-Public Use
  Company Number: CN-APOTEX-2019AP021532

PATIENT
  Age: 49 Year
  Sex: Male

DRUGS (5)
  1. METHYLPREDNISOLONE. [Concomitant]
     Active Substance: METHYLPREDNISOLONE
     Indication: MENINGITIS
     Dosage: UNK
     Route: 065
  2. ACYCLOVIR. [Concomitant]
     Active Substance: ACYCLOVIR
     Indication: ANTIVIRAL TREATMENT
     Dosage: UNK
     Route: 065
  3. SEROXAT [Suspect]
     Active Substance: PAROXETINE HYDROCHLORIDE
     Indication: DEPRESSION
     Dosage: 20 MG, QD
     Route: 048
  4. CELEXA [Suspect]
     Active Substance: CITALOPRAM HYDROBROMIDE
     Indication: NEUROLOGICAL SYMPTOM
     Dosage: UNK
     Route: 065
  5. OLANZAPINE. [Concomitant]
     Active Substance: OLANZAPINE
     Indication: NEUROLOGICAL SYMPTOM
     Dosage: UNK
     Route: 065

REACTIONS (15)
  - Serotonin syndrome [Recovered/Resolved]
  - Muscle rigidity [Recovered/Resolved]
  - Hypertonia [Recovered/Resolved]
  - Malaise [Recovering/Resolving]
  - Depressed level of consciousness [Recovered/Resolved]
  - Hyperhidrosis [Recovered/Resolved]
  - Central nervous system infection [Recovering/Resolving]
  - Discomfort [Recovering/Resolving]
  - Neurological symptom [Recovering/Resolving]
  - Heart rate irregular [Recovered/Resolved]
  - Central nervous system inflammation [Recovering/Resolving]
  - Lethargy [Recovering/Resolving]
  - Body temperature increased [Recovered/Resolved]
  - Treatment noncompliance [Unknown]
  - Pyrexia [Recovered/Resolved]
